FAERS Safety Report 18523427 (Version 7)
Quarter: 2021Q1

REPORT INFORMATION
  Report Type: Spontaneous
  Country: US (occurrence: US)
  Receive Date: 20201119
  Receipt Date: 20210126
  Transmission Date: 20210419
  Serious: No
  Sender: FDA-Public Use
  Company Number: US-PFIZER INC-2020407341

PATIENT
  Age: 68 Year
  Sex: Female

DRUGS (2)
  1. PREMPRO [Suspect]
     Active Substance: ESTROGENS, CONJUGATED\MEDROXYPROGESTERONE ACETATE
     Indication: ATROPHIC VULVOVAGINITIS
     Dosage: UNK
  2. PREMPRO [Interacting]
     Active Substance: ESTROGENS, CONJUGATED\MEDROXYPROGESTERONE ACETATE
     Dosage: UNK, DAILY (1 TABLET BY MOUTH DAILY)
     Route: 048
     Dates: start: 20210118

REACTIONS (4)
  - Mental disorder [Unknown]
  - Drug interaction [Unknown]
  - Night sweats [Unknown]
  - Feeling abnormal [Unknown]
